FAERS Safety Report 13031224 (Version 2)
Quarter: 2017Q1

REPORT INFORMATION
  Report Type: Spontaneous
  Country: DE (occurrence: DE)
  Receive Date: 20161215
  Receipt Date: 20170131
  Transmission Date: 20170428
  Serious: Yes (Other)
  Sender: FDA-Public Use
  Company Number: DE-GLAXOSMITHKLINE-DE2016GSK184124

PATIENT
  Age: 70 Year
  Sex: Male
  Weight: 83 kg

DRUGS (3)
  1. MOMETASONE [Concomitant]
     Active Substance: MOMETASONE
     Indication: CHRONIC SINUSITIS
     Dosage: 1 PUFF(S), QD
     Route: 045
     Dates: start: 201610
  2. FLUTIFORM [Concomitant]
     Active Substance: FLUTICASONE PROPIONATE\FORMOTEROL FUMARATE
     Indication: ASTHMA
     Dosage: 260 UG, BID
     Route: 055
     Dates: start: 201610
  3. NUCALA [Suspect]
     Active Substance: MEPOLIZUMAB
     Indication: ASTHMA
     Dosage: 100 MG, EVERY 4 WEEKS
     Route: 058

REACTIONS (4)
  - Drug effect decreased [Recovered/Resolved]
  - Respiratory distress [Recovered/Resolved]
  - Therapeutic reaction time decreased [Recovered/Resolved]
  - Malaise [Recovered/Resolved]

NARRATIVE: CASE EVENT DATE: 201610
